FAERS Safety Report 20329477 (Version 2)
Quarter: 2022Q2

REPORT INFORMATION
  Report Type: Spontaneous
  Country: AT (occurrence: AT)
  Receive Date: 20220112
  Receipt Date: 20220405
  Transmission Date: 20220721
  Serious: Yes (Death, Life-Threatening, Other)
  Sender: FDA-Public Use
  Company Number: None

PATIENT
  Age: 12 Year
  Sex: Male
  Weight: 46 kg

DRUGS (4)
  1. ELEXACAFTOR\IVACAFTOR\TEZACAFTOR [Suspect]
     Active Substance: ELEXACAFTOR\IVACAFTOR\TEZACAFTOR
     Indication: Cystic fibrosis
     Dosage: UNK
     Route: 048
     Dates: start: 20211109, end: 202112
  2. COMIRNATY [Suspect]
     Active Substance: TOZINAMERAN
     Indication: COVID-19 immunisation
     Dosage: 1ST DOSE
     Route: 065
     Dates: start: 20210702
  3. COMIRNATY [Suspect]
     Active Substance: TOZINAMERAN
     Dosage: 2ND DOSE
     Route: 065
     Dates: start: 20210723
  4. COMIRNATY [Suspect]
     Active Substance: TOZINAMERAN
     Dosage: 3RD DOSE
     Route: 065
     Dates: start: 20211212

REACTIONS (10)
  - Brain injury [Fatal]
  - Cardio-respiratory arrest [Recovered/Resolved]
  - Loss of consciousness [Recovered/Resolved]
  - Electrocardiogram QT prolonged [Unknown]
  - Injection site pain [Unknown]
  - Fibrin D dimer increased [Unknown]
  - Pyrexia [Unknown]
  - Vomiting [Unknown]
  - Adverse event following immunisation [Unknown]
  - Headache [Unknown]

NARRATIVE: CASE EVENT DATE: 20211201
